FAERS Safety Report 22241364 (Version 1)
Quarter: 2023Q2

REPORT INFORMATION
  Report Type: Report from Study
  Country: US (occurrence: US)
  Receive Date: 20230421
  Receipt Date: 20230421
  Transmission Date: 20230722
  Serious: No
  Sender: FDA-Public Use
  Company Number: US-002147023-NVSC2023US090160

PATIENT
  Sex: Male
  Weight: 77.11 kg

DRUGS (2)
  1. KETOCONAZOLE [Suspect]
     Active Substance: KETOCONAZOLE
     Indication: Dermatitis
     Dosage: 2 %
     Route: 065
  2. KETOCONAZOLE [Suspect]
     Active Substance: KETOCONAZOLE
     Indication: Psoriasis

REACTIONS (3)
  - Psoriasis [Unknown]
  - Drug ineffective [Unknown]
  - Product use in unapproved indication [Unknown]
